FAERS Safety Report 22191790 (Version 1)
Quarter: 2023Q2

REPORT INFORMATION
  Report Type: Spontaneous
  Country: FR (occurrence: FR)
  Receive Date: 20230410
  Receipt Date: 20230410
  Transmission Date: 20230722
  Serious: Yes (Other)
  Sender: FDA-Public Use
  Company Number: None

PATIENT
  Age: 74 Year
  Sex: Female
  Weight: 89 kg

DRUGS (4)
  1. LEVETIRACETAM [Suspect]
     Active Substance: LEVETIRACETAM
     Indication: Seizure
     Dosage: 1 GRAM, 1 TOTAL
     Route: 065
     Dates: start: 20230309, end: 20230309
  2. AMOXICILLIN\CLAVULANATE POTASSIUM [Suspect]
     Active Substance: AMOXICILLIN\CLAVULANATE POTASSIUM
     Indication: Pneumonia aspiration
     Dosage: 2 GRAM, QD
     Route: 042
     Dates: start: 20230308, end: 20230309
  3. IOMERON [Suspect]
     Active Substance: IOMEPROL
     Indication: Computerised tomogram head
     Dosage: 70 MILLILITER, 1 TOTAL
     Route: 042
     Dates: start: 20230308, end: 20230308
  4. OXYCODONE HYDROCHLORIDE [Suspect]
     Active Substance: OXYCODONE HYDROCHLORIDE
     Indication: Procedural pain
     Dosage: 5 MILLIGRAM, QD
     Route: 048
     Dates: start: 20230308, end: 20230309

REACTIONS (2)
  - Face oedema [Recovered/Resolved]
  - Erythema [Recovered/Resolved]

NARRATIVE: CASE EVENT DATE: 20230309
